FAERS Safety Report 6132235-4 (Version None)
Quarter: 2009Q1

REPORT INFORMATION
  Report Type: 
  Country: None (occurrence: None)
  Receive Date: 20090325
  Receipt Date: 20090317
  Transmission Date: 20090719
  Serious: Yes (Other)
  Sender: FDA-Public Use
  Company Number: US-PFIZER INC-2008042637

PATIENT
  Sex: Male

DRUGS (5)
  1. LYRICA [Suspect]
     Indication: PAIN
     Dosage: UNK
     Dates: start: 20080401, end: 20080501
  2. NEURONTIN [Suspect]
     Indication: PAIN
     Dosage: UNK
  3. PRILOSEC [Concomitant]
     Dosage: UNK
  4. SYNTHROID [Concomitant]
     Dosage: UNK
  5. XANAX [Concomitant]
     Indication: POST-TRAUMATIC STRESS DISORDER
     Dosage: 2 MG, 3X/DAY

REACTIONS (10)
  - ARTHROPATHY [None]
  - ASTHMA [None]
  - CONVULSION [None]
  - FEELING JITTERY [None]
  - ILL-DEFINED DISORDER [None]
  - IMPAIRED DRIVING ABILITY [None]
  - IRRITABILITY [None]
  - MUSCLE SPASMS [None]
  - PAIN IN EXTREMITY [None]
  - WITHDRAWAL SYNDROME [None]
